FAERS Safety Report 6800751-5 (Version None)
Quarter: 2010Q2

REPORT INFORMATION
  Report Type: 
  Country: None (occurrence: None)
  Receive Date: 20100629
  Receipt Date: 20100629
  Transmission Date: 20101027
  Serious: Yes (Death)
  Sender: FDA-Public Use
  Company Number: None

PATIENT
  Age: 4 Year
  Sex: Male

DRUGS (1)
  1. TYLENOL [Suspect]

REACTIONS (8)
  - ALTERED STATE OF CONSCIOUSNESS [None]
  - CHROMATURIA [None]
  - CRYING [None]
  - GRAND MAL CONVULSION [None]
  - LETHARGY [None]
  - MYDRIASIS [None]
  - PHYTOTHERAPY [None]
  - SUDDEN INFANT DEATH SYNDROME [None]
